FAERS Safety Report 7783527-4 (Version None)
Quarter: 2011Q3

REPORT INFORMATION
  Report Type: 
  Country: None (occurrence: None)
  Receive Date: 20110928
  Receipt Date: 20110718
  Transmission Date: 20111222
  Serious: No
  Sender: FDA-Public Use
  Company Number: US-MYLANLABS-2011S1014845

PATIENT
  Age: 56 Year
  Sex: Female

DRUGS (4)
  1. KLONOPIN [Concomitant]
     Indication: ANXIETY
     Route: 048
  2. LEVOTHYROXINE SODIUM [Concomitant]
     Indication: HYPOTHYROIDISM
     Route: 048
     Dates: start: 20010701
  3. TOPIRAMATE [Suspect]
     Indication: BIPOLAR DISORDER
     Route: 048
     Dates: start: 20000101, end: 20110429
  4. LIOTHYRONINE SODIUM [Concomitant]
     Indication: HYPOTHYROIDISM
     Route: 048
     Dates: start: 20010701

REACTIONS (5)
  - INSOMNIA [None]
  - DRUG WITHDRAWAL SYNDROME [None]
  - APHASIA [None]
  - ANXIETY [None]
  - CONFUSIONAL STATE [None]
